FAERS Safety Report 11587916 (Version 1)
Quarter: 2015Q4

REPORT INFORMATION
  Report Type: Spontaneous
  Country: US (occurrence: US)
  Receive Date: 20151001
  Receipt Date: 20151001
  Transmission Date: 20160304
  Serious: No
  Sender: FDA-Public Use
  Company Number: US-AMGEN-USASP2015099555

PATIENT
  Sex: Female

DRUGS (3)
  1. ENBREL [Suspect]
     Active Substance: ETANERCEPT
     Indication: PSORIASIS
  2. ENBREL [Suspect]
     Active Substance: ETANERCEPT
     Indication: SPINAL OSTEOARTHRITIS
     Dosage: 25 MG, 2 TIMES/WK (TWICE A WEEK)
     Route: 058
     Dates: start: 2011
  3. ENBREL [Suspect]
     Active Substance: ETANERCEPT
     Indication: PSORIATIC ARTHROPATHY
     Dosage: 50 MG, QWK (ONCE WEEKLY)
     Route: 058
     Dates: start: 201508

REACTIONS (5)
  - Off label use [Unknown]
  - Injection site swelling [Unknown]
  - Drug dose omission [Unknown]
  - Injection site bruising [Unknown]
  - Injection site pain [Unknown]
